FAERS Safety Report 6215706-1 (Version None)
Quarter: 2009Q2

REPORT INFORMATION
  Report Type: 
  Country: None (occurrence: None)
  Receive Date: 20090603
  Receipt Date: 20090603
  Transmission Date: 20091009
  Serious: Yes (Life-Threatening, Hospitalization)
  Sender: FDA-Public Use
  Company Number: None

PATIENT
  Sex: Female
  Weight: 63.5036 kg

DRUGS (3)
  1. YAZ [Suspect]
     Indication: CONTRACEPTION
     Dosage: ONE PILL DAILY PO/047
     Route: 048
     Dates: start: 20080401, end: 20081001
  2. YAZ [Suspect]
     Indication: OVARIAN CYST
     Dosage: ONE PILL DAILY PO/047
     Route: 048
     Dates: start: 20080401, end: 20081001
  3. SYNTHROID [Concomitant]

REACTIONS (3)
  - HAEMOPTYSIS [None]
  - PNEUMONIA [None]
  - PULMONARY EMBOLISM [None]
